FAERS Safety Report 16919384 (Version 1)
Quarter: 2019Q4

REPORT INFORMATION
  Report Type: Spontaneous
  Country: US (occurrence: US)
  Receive Date: 20191014
  Receipt Date: 20191014
  Transmission Date: 20200122
  Serious: Yes (Hospitalization)
  Sender: FDA-Public Use
  Company Number: None

PATIENT
  Age: 44 Year
  Sex: Male

DRUGS (8)
  1. METRONIDAZOLE TAB 500 MG [Concomitant]
  2. BOSULIF [Suspect]
     Active Substance: BOSUTINIB MONOHYDRATE
     Indication: LEUKAEMIA
     Route: 048
     Dates: start: 20190906
  3. PROCHLORPER TAB 5 MG [Concomitant]
  4. LEVOFLOXACIN TAB 500 MG [Concomitant]
  5. CALC ACETATE CAP 667 MG [Concomitant]
  6. HYDROXYUREA CAP 500 MG [Concomitant]
  7. ALLOPURINOL TAB 300 MG [Concomitant]
  8. ONDANSETRON TAB 8 MG [Concomitant]

REACTIONS (4)
  - Nausea [None]
  - Vomiting [None]
  - Therapy cessation [None]
  - Food poisoning [None]
